FAERS Safety Report 6988312 (Version 3)
Quarter: 2020Q3

REPORT INFORMATION
  Report Type: Report from Study
  Country: IN (occurrence: IN)
  Receive Date: 20090506
  Receipt Date: 20090828
  Transmission Date: 20201104
  Serious: Yes (Death, Life-Threatening, Hospitalization)
  Sender: FDA-Public Use
  Company Number: IN-WYE-H09165209

PATIENT
  Age: 55 Year
  Sex: Male
  Weight: 55 kg

DRUGS (8)
  1. AVASTIN [Suspect]
     Active Substance: BEVACIZUMAB
     Indication: METASTATIC RENAL CELL CARCINOMA
     Route: 042
     Dates: start: 20081114, end: 20090429
  2. AMIKACIN. [Concomitant]
     Active Substance: AMIKACIN
     Indication: ABDOMINAL ABSCESS
     Dosage: ^150 MG^
     Route: 042
     Dates: start: 20090430, end: 20090510
  3. TRAMADOL HYDROCHLORIDE. [Concomitant]
     Active Substance: TRAMADOL HYDROCHLORIDE
     Indication: PAIN
     Dosage: ^100MG^
     Route: 042
     Dates: start: 20090429, end: 20090509
  4. METRONIDAZOLE. [Concomitant]
     Active Substance: METRONIDAZOLE
     Dosage: ^100 M^
     Route: 065
     Dates: start: 20090429, end: 20090510
  5. PIPERACILLIN/TAZOBACTAM [Concomitant]
     Active Substance: PIPERACILLIN SODIUM\TAZOBACTAM SODIUM
     Indication: ABDOMINAL ABSCESS
     Dosage: ^5G^
     Route: 042
     Dates: start: 20090429, end: 20090510
  6. LORAZEPAM. [Concomitant]
     Active Substance: LORAZEPAM
     Indication: INSOMNIA
     Dosage: UNKNOWN
     Route: 048
     Dates: start: 20090314
  7. ROFERON?A [Suspect]
     Active Substance: INTERFERON ALFA-2A
     Indication: METASTATIC RENAL CELL CARCINOMA
     Dosage: 9 MIU 3 TIMES PER WEEK
     Route: 058
     Dates: start: 20081114, end: 20090429
  8. MEROPENEM. [Concomitant]
     Active Substance: MEROPENEM
     Indication: ABDOMINAL ABSCESS
     Dosage: ^1 G^
     Route: 042
     Dates: start: 20090502, end: 20090510

REACTIONS (2)
  - Sepsis [Fatal]
  - Abdominal abscess [Not Recovered/Not Resolved]

NARRATIVE: CASE EVENT DATE: 20090429
